FAERS Safety Report 22078770 (Version 1)
Quarter: 2023Q1

REPORT INFORMATION
  Report Type: Report from Study
  Country: US (occurrence: US)
  Receive Date: 20230309
  Receipt Date: 20230309
  Transmission Date: 20230417
  Serious: Yes (Death, Hospitalization)
  Sender: FDA-Public Use
  Company Number: US-MYLANLABS-2023M1024266

PATIENT
  Age: 35 Year
  Sex: Female

DRUGS (3)
  1. NOREPINEPHRINE [Suspect]
     Active Substance: NOREPINEPHRINE
     Indication: Toxicity to various agents
     Dosage: UNK
     Route: 065
  2. ACETYLCYSTEINE [Suspect]
     Active Substance: ACETYLCYSTEINE
     Indication: Toxicity to various agents
     Dosage: UNK
     Route: 065
  3. VASOPRESSIN [Suspect]
     Active Substance: VASOPRESSIN
     Indication: Toxicity to various agents
     Dosage: UNK
     Route: 065

REACTIONS (1)
  - Drug ineffective [Fatal]
